FAERS Safety Report 15858771 (Version 1)
Quarter: 2019Q1

REPORT INFORMATION
  Report Type: Spontaneous
  Country: US (occurrence: US)
  Receive Date: 20190123
  Receipt Date: 20190123
  Transmission Date: 20190417
  Serious: Yes (Other)
  Sender: FDA-Public Use
  Company Number: US-PURDUE PHARMA-USA-2019-0145739

PATIENT
  Sex: Male

DRUGS (1)
  1. OXYCONTIN [Suspect]
     Active Substance: OXYCODONE HYDROCHLORIDE
     Indication: INJURY
     Route: 048

REACTIONS (6)
  - Diabetes mellitus [Unknown]
  - Hepatic cirrhosis [Unknown]
  - Hypertension [Unknown]
  - Unevaluable event [Unknown]
  - Pancreatitis acute [Unknown]
  - Cardiac disorder [Unknown]
